FAERS Safety Report 5842800-7 (Version None)
Quarter: 2008Q3

REPORT INFORMATION
  Report Type: 
  Country: None (occurrence: None)
  Receive Date: 20080811
  Receipt Date: 20080801
  Transmission Date: 20090109
  Serious: Yes (Hospitalization)
  Sender: FDA-Public Use
  Company Number: 2008SP013558

PATIENT
  Age: 63 Year
  Sex: Male
  Weight: 83.6 kg

DRUGS (16)
  1. TEMODAR [Suspect]
     Indication: GLIOBLASTOMA MULTIFORME
     Dosage: 75 MG/M2; QD; PO, 75 MG/M2; QD;
     Route: 048
     Dates: start: 20080527, end: 20080627
  2. TEMODAR [Suspect]
     Indication: GLIOBLASTOMA MULTIFORME
     Dosage: 75 MG/M2; QD; PO, 75 MG/M2; QD;
     Route: 048
     Dates: end: 20080708
  3. ASPIRIN [Concomitant]
  4. ASPIRIN [Concomitant]
  5. NORVASC [Concomitant]
  6. LEXAPRO [Concomitant]
  7. PLAVIX [Concomitant]
  8. DILANTIN /00017401/ [Concomitant]
  9. VYTORIN [Concomitant]
  10. KEPPRA [Concomitant]
  11. NIASPAN [Concomitant]
  12. GEODON /01487002/ [Concomitant]
  13. CLONAZEPAM [Concomitant]
  14. INEXIUM /01479302/ [Concomitant]
  15. LORTAB [Concomitant]
  16. LORAZEPAM [Concomitant]

REACTIONS (10)
  - BRAIN CONTUSION [None]
  - CEREBRAL HAEMORRHAGE [None]
  - COMPLEX PARTIAL SEIZURES [None]
  - FALL [None]
  - HEART RATE INCREASED [None]
  - LACERATION [None]
  - OXYGEN SATURATION DECREASED [None]
  - RESPIRATORY RATE INCREASED [None]
  - SUBARACHNOID HAEMORRHAGE [None]
  - TRANSIENT ISCHAEMIC ATTACK [None]
